FAERS Safety Report 4376724-1 (Version None)
Quarter: 2004Q2

REPORT INFORMATION
  Report Type: 
  Country: None (occurrence: None)
  Receive Date: 20040609
  Receipt Date: 20040503
  Transmission Date: 20050107
  Serious: Yes (Other)
  Sender: FDA-Public Use
  Company Number: 2004211810US

PATIENT
  Sex: 0

DRUGS (5)
  1. BEXTRA [Suspect]
     Indication: BACK PAIN
     Dosage: 20 MG,
  2. NORVASC [Concomitant]
  3. LIPITOR [Concomitant]
  4. LASIX [Concomitant]
  5. AVAPRO [Concomitant]

REACTIONS (1)
  - CARDIAC FAILURE CONGESTIVE [None]
